FAERS Safety Report 10662525 (Version 1)
Quarter: 2014Q4

REPORT INFORMATION
  Report Type: Spontaneous
  Country: AU (occurrence: AU)
  Receive Date: 20141218
  Receipt Date: 20141218
  Transmission Date: 20150529
  Serious: Yes (Hospitalization, Other)
  Sender: FDA-Public Use
  Company Number: AU-TAKEDA-2014JNJ006370

PATIENT

DRUGS (32)
  1. DEXAMETHASONE. [Suspect]
     Active Substance: DEXAMETHASONE
     Indication: PLASMA CELL MYELOMA
     Dosage: UNK
     Route: 048
     Dates: start: 20140715, end: 20140816
  2. ALLOPURINOL. [Concomitant]
     Active Substance: ALLOPURINOL
     Indication: PROPHYLAXIS
     Dosage: 300 MG, UNK
     Route: 065
     Dates: start: 20140711, end: 20140713
  3. MAGNESIUM [Concomitant]
     Active Substance: MAGNESIUM
     Dosage: 4 DF, (2 TABLET, 2 IN 1 DAY)
     Route: 048
     Dates: start: 20140805, end: 20140818
  4. ZOMETA [Concomitant]
     Active Substance: ZOLEDRONIC ACID
     Indication: BONE DISORDER
     Dosage: 4 MG, (1 IN 56 DAYS)
     Dates: start: 20120613
  5. HIRUDOID FORTE [Concomitant]
     Indication: CONTUSION
     Dosage: UNK
     Route: 061
     Dates: start: 20140819
  6. PANADOL                            /00020001/ [Concomitant]
     Indication: PAIN
     Dosage: 6 TABLETS (2 TABLETS 3 IN 1 DAY)
     Route: 065
     Dates: start: 2009
  7. VELCADE [Suspect]
     Active Substance: BORTEZOMIB
     Indication: PLASMA CELL MYELOMA
     Dosage: 1.3 MG/M2, UNK
     Route: 058
     Dates: start: 20140715, end: 20140815
  8. LACTATED RINGERS [Concomitant]
     Active Substance: CALCIUM CHLORIDE\POTASSIUM CHLORIDE\SODIUM CHLORIDE\SODIUM LACTATE
     Indication: PROPHYLAXIS AGAINST DEHYDRATION
     Dosage: UNK
     Route: 042
     Dates: start: 20140713, end: 20140716
  9. CLEXANE [Concomitant]
     Active Substance: ENOXAPARIN SODIUM
     Indication: THROMBOSIS PROPHYLAXIS
     Dosage: 40 MG, UNK
     Route: 058
     Dates: start: 20140713, end: 20140727
  10. MAGNESIUM [Concomitant]
     Active Substance: MAGNESIUM
     Indication: FIBROMYALGIA
     Dosage: 4 DF, (2 TABLET, 2 IN 1 DAY)
     Route: 048
     Dates: end: 20140715
  11. MAGNESIUM [Concomitant]
     Active Substance: MAGNESIUM
     Dosage: 6 DF,(2 TABLET, 3 IN 1 DAY)
     Route: 048
     Dates: start: 20140819
  12. ACYCLOVIR                          /00587301/ [Concomitant]
     Active Substance: ACYCLOVIR
     Indication: PROPHYLAXIS
     Dosage: 800 MG,400 MG 2 IN ONE DAY
     Route: 048
     Dates: start: 20140714
  13. RESPRIM [Concomitant]
     Indication: ANTIBIOTIC PROPHYLAXIS
     Dosage: 160/800 MG (1 DF  IN 1 DAY)
     Route: 048
     Dates: start: 20140715, end: 20140727
  14. VOLTAREN [Concomitant]
     Active Substance: DICLOFENAC SODIUM
     Indication: OSTEOARTHRITIS
     Dosage: 1.6 %, AS REQUIRED
     Route: 061
     Dates: start: 2006
  15. CLEXANE [Concomitant]
     Active Substance: ENOXAPARIN SODIUM
     Dosage: 160 MG, UNK
     Route: 058
     Dates: start: 20140728, end: 20140818
  16. MAGNESIUM [Concomitant]
     Active Substance: MAGNESIUM
     Dosage: 6 DF,  (2 TABLET, 3 IN ONE DAY)
     Route: 048
     Dates: start: 20140716, end: 20140804
  17. RASBURICASE [Concomitant]
     Active Substance: RASBURICASE
     Indication: PROPHYLAXIS
     Dosage: 18 MG, UNK
     Route: 065
     Dates: start: 20140715, end: 20140715
  18. CETIRIZIN [Concomitant]
     Indication: HYPERSENSITIVITY
     Dosage: 10 MG, 1 IN 1 DAY
     Route: 048
     Dates: start: 2009
  19. MOVICOL [Concomitant]
     Active Substance: POLYETHYLENE GLYCOL 3350\POTASSIUM CHLORIDE\SODIUM BICARBONATE\SODIUM CHLORIDE
     Indication: CONSTIPATION PROPHYLAXIS
     Dosage: 2 SACHETS AS REQUIRED
     Route: 048
     Dates: start: 20140718
  20. RESPRIM [Concomitant]
     Dosage: 1 DF, IN ONE DAY
     Route: 048
     Dates: start: 20140805, end: 20140825
  21. OMEPRAZOLE. [Concomitant]
     Active Substance: OMEPRAZOLE
     Indication: GASTRITIS
     Dosage: 20 MG, ONE IN ONE DAY
     Route: 048
     Dates: start: 20140812
  22. ALLOPURINOL. [Concomitant]
     Active Substance: ALLOPURINOL
     Dosage: 100 MG, UNK
     Dates: start: 20140714
  23. CLEXANE [Concomitant]
     Active Substance: ENOXAPARIN SODIUM
     Dosage: 80 MG, UNK
     Route: 058
     Dates: start: 20140819
  24. AMLODIPINE [Concomitant]
     Active Substance: AMLODIPINE BESYLATE
     Dosage: 10 MG, UNK
     Route: 048
     Dates: start: 20140728
  25. OXYCODONE [Concomitant]
     Active Substance: OXYCODONE
     Indication: BACK PAIN
     Dosage: 5 MG, AS REQUIRED
     Route: 048
     Dates: start: 20140713
  26. SODIUM CHLORIDE. [Concomitant]
     Active Substance: SODIUM CHLORIDE
     Indication: PROPHYLAXIS AGAINST DEHYDRATION
     Dosage: UNK
     Route: 065
     Dates: start: 20140713, end: 20140714
  27. AMLODIPINE [Concomitant]
     Active Substance: AMLODIPINE BESYLATE
     Indication: HYPERTENSION
     Dosage: 5 MG, ONE IN ONE DAY
     Route: 048
     Dates: start: 20140711, end: 20140727
  28. PARACETAMOL [Concomitant]
     Active Substance: ACETAMINOPHEN
     Indication: OSTEOARTHRITIS
     Dosage: 1 G, UNK
     Route: 048
     Dates: start: 2005
  29. COLOXYL WITH SENNA [Concomitant]
     Active Substance: DOCUSATE\SENNOSIDES
     Indication: CONSTIPATION PROPHYLAXIS
     Dosage: UNK
     Route: 048
     Dates: start: 20140711
  30. RESPRIM [Concomitant]
     Dosage: 160/800 MG (1 DF  IN 2 DAY)
     Route: 048
     Dates: start: 20140728, end: 20140804
  31. OXYCONTIN [Concomitant]
     Active Substance: OXYCODONE HYDROCHLORIDE
     Indication: GASTRITIS
     Dosage: UNK
     Route: 048
     Dates: start: 20140812
  32. RESPRIM [Concomitant]
     Dosage: 160/800 MG (1 DF IN 2 DAY)
     Route: 048
     Dates: start: 20140826

REACTIONS (5)
  - Hyperkalaemia [Unknown]
  - Haematoma [Unknown]
  - Pulmonary embolism [Unknown]
  - Oedema peripheral [Recovered/Resolved]
  - Contusion [Unknown]

NARRATIVE: CASE EVENT DATE: 20140725
